FAERS Safety Report 6814917-1 (Version None)
Quarter: 2010Q3

REPORT INFORMATION
  Report Type: 
  Country: None (occurrence: None)
  Receive Date: 20100702
  Receipt Date: 20100614
  Transmission Date: 20110219
  Serious: Yes (Life-Threatening, Other)
  Sender: FDA-Public Use
  Company Number: DE-ROCHE-711740

PATIENT
  Sex: Male
  Weight: 120 kg

DRUGS (6)
  1. TOCILIZUMAB [Suspect]
     Route: 042
     Dates: start: 20091210, end: 20100204
  2. METEX [Suspect]
     Route: 058
     Dates: start: 20080101, end: 20100301
  3. PREDNISOLON [Suspect]
     Route: 048
     Dates: start: 20030101, end: 20100501
  4. OXYCODONE HCL [Suspect]
     Route: 048
  5. ALENDRONIC ACID [Suspect]
     Indication: OSTEOPOROSIS
     Route: 048
     Dates: end: 20100501
  6. PANTOZOL [Concomitant]

REACTIONS (2)
  - PULMONARY EMBOLISM [None]
  - THROMBOSIS [None]
